FAERS Safety Report 7563126-X (Version None)
Quarter: 2011Q2

REPORT INFORMATION
  Report Type: 
  Country: None (occurrence: None)
  Receive Date: 20110615
  Receipt Date: 20101020
  Transmission Date: 20111010
  Serious: Yes (Hospitalization)
  Sender: FDA-Public Use
  Company Number: US-SEPTODONT-201000203

PATIENT
  Sex: Male

DRUGS (2)
  1. MARCAINE [Suspect]
     Indication: LOCAL ANAESTHESIA
     Dosage: CARTRIDGE DENTAL
     Route: 004
     Dates: start: 20100930
  2. SEPTOCAINE [Suspect]
     Indication: LOCAL ANAESTHESIA
     Dosage: DENTAL
     Route: 004
     Dates: start: 20100930

REACTIONS (8)
  - CONVULSION [None]
  - SPEECH DISORDER [None]
  - OVERDOSE [None]
  - OPERATIVE HAEMORRHAGE [None]
  - DIZZINESS [None]
  - LOSS OF CONSCIOUSNESS [None]
  - INCORRECT ROUTE OF DRUG ADMINISTRATION [None]
  - FATIGUE [None]
